FAERS Safety Report 6342727-0 (Version None)
Quarter: 2009Q3

REPORT INFORMATION
  Report Type: 
  Country: None (occurrence: None)
  Receive Date: 20090908
  Receipt Date: 20090903
  Transmission Date: 20100115
  Serious: Yes (Death)
  Sender: FDA-Public Use
  Company Number: JP-JNJFOC-20081001268

PATIENT
  Age: 79 Year
  Sex: Female

DRUGS (9)
  1. ITRIZOLE [Suspect]
     Route: 041
  2. ITRIZOLE [Suspect]
     Indication: FEBRILE NEUTROPENIA
     Route: 041
  3. MEROPEN [Concomitant]
  4. ADONA [Concomitant]
  5. TRANSAMIN [Concomitant]
  6. SOLU-MEDROL [Concomitant]
  7. GASTER D [Concomitant]
     Route: 048
  8. BIOFERMIN R [Concomitant]
     Route: 048
  9. BROCIN [Concomitant]
     Route: 048

REACTIONS (1)
  - INTERSTITIAL LUNG DISEASE [None]
